FAERS Safety Report 4679695-3 (Version None)
Quarter: 2005Q2

REPORT INFORMATION
  Report Type: 
  Country: None (occurrence: None)
  Receive Date: 20050531
  Receipt Date: 20050517
  Transmission Date: 20051028
  Serious: Yes (Hospitalization)
  Sender: FDA-Public Use
  Company Number: 2005076356

PATIENT
  Sex: Male

DRUGS (3)
  1. EMCYT [Suspect]
     Indication: PROSTATE CANCER
     Dosage: (CYCLIC), ORAL
     Route: 048
     Dates: start: 20030710, end: 20030720
  2. ETOPOSIDE [Suspect]
     Indication: PROSTATE CANCER
     Dosage: (CYCLIC)
     Dates: start: 20030710, end: 20030720
  3. TAXOL [Suspect]
     Indication: PROSTATE CANCER
     Dosage: (CYCLIC)
     Dates: start: 20030710

REACTIONS (1)
  - FEBRILE NEUTROPENIA [None]
